FAERS Safety Report 5740381-X (Version None)
Quarter: 2008Q2

REPORT INFORMATION
  Report Type: 
  Country: None (occurrence: None)
  Receive Date: 20080516
  Receipt Date: 20080506
  Transmission Date: 20081010
  Serious: Yes (Other)
  Sender: FDA-Public Use
  Company Number: US-ROCHE-526159

PATIENT
  Sex: Female
  Weight: 67.6 kg

DRUGS (10)
  1. PEG-INTERFERON A-2A (RO 25-8310) [Suspect]
     Indication: HEPATITIS C
     Dosage: FORM:PRE-FILLED SYRINGE.
     Route: 065
     Dates: start: 20070919, end: 20080421
  2. PEG-INTERFERON A-2A (RO 25-8310) [Suspect]
     Route: 065
  3. RIBAVIRIN [Suspect]
     Indication: HEPATITIS C
     Route: 065
     Dates: start: 20070919, end: 20080421
  4. RIBAVIRIN [Suspect]
     Route: 065
  5. UNSPECIFIED MEDICATION [Concomitant]
     Indication: MIGRAINE
  6. XANAX [Concomitant]
  7. LISINOPRIL [Concomitant]
     Indication: BLOOD PRESSURE
  8. LISINOPRIL [Concomitant]
     Dosage: DOSE REDUCED TO HALF.
  9. PAROXETINE HCL [Concomitant]
     Indication: ANXIETY
  10. CHLORPROMAZINE [Suspect]
     Indication: DRUG USE FOR UNKNOWN INDICATION
     Route: 065

REACTIONS (44)
  - ABDOMINAL PAIN [None]
  - ABNORMAL BEHAVIOUR [None]
  - AFFECT LABILITY [None]
  - ALOPECIA [None]
  - AMNESIA [None]
  - ANAEMIA [None]
  - BACK PAIN [None]
  - BALANCE DISORDER [None]
  - BLINDNESS [None]
  - BRADYPHRENIA [None]
  - BRONCHITIS [None]
  - CEREBROVASCULAR ACCIDENT [None]
  - DECREASED APPETITE [None]
  - DEPRESSION [None]
  - DIARRHOEA [None]
  - DRUG HYPERSENSITIVITY [None]
  - DRY EYE [None]
  - DRY MOUTH [None]
  - DYSARTHRIA [None]
  - DYSPNOEA [None]
  - FALL [None]
  - FATIGUE [None]
  - INJECTION SITE IRRITATION [None]
  - INSOMNIA [None]
  - IRRITABILITY [None]
  - MENINGITIS [None]
  - MIGRAINE WITH AURA [None]
  - MOOD SWINGS [None]
  - MUSCLE SPASMS [None]
  - MUSCULOSKELETAL PAIN [None]
  - NAUSEA [None]
  - NECK PAIN [None]
  - NERVOUSNESS [None]
  - OCULAR HYPERAEMIA [None]
  - PRODUCTIVE COUGH [None]
  - PRURITUS GENERALISED [None]
  - RASH [None]
  - ROAD TRAFFIC ACCIDENT [None]
  - SKIN DISORDER [None]
  - UPPER RESPIRATORY TRACT INFECTION [None]
  - VISION BLURRED [None]
  - VISUAL DISTURBANCE [None]
  - VOMITING [None]
  - WEIGHT INCREASED [None]
